FAERS Safety Report 17608644 (Version 4)
Quarter: 2020Q2

REPORT INFORMATION
  Report Type: Report from Study
  Country: US (occurrence: US)
  Receive Date: 20200401
  Receipt Date: 20200429
  Transmission Date: 20200713
  Serious: Yes (Other)
  Sender: FDA-Public Use
  Company Number: US-IPSEN BIOPHARMACEUTICALS, INC.-2020-06274

PATIENT
  Sex: Female

DRUGS (16)
  1. CREON [Concomitant]
     Active Substance: PANCRELIPASE AMYLASE\PANCRELIPASE LIPASE\PANCRELIPASE PROTEASE
  2. HCTZ/METOPROLOL [Concomitant]
     Dosage: 12.5/25 MG
  3. EVEROLIMUS. [Concomitant]
     Active Substance: EVEROLIMUS
  4. DEXAMETHASONE. [Concomitant]
     Active Substance: DEXAMETHASONE
  5. METOPROLOL SUCC. [Concomitant]
  6. ONDANSETRON [Concomitant]
     Active Substance: ONDANSETRON
  7. AMLODIPINE [Concomitant]
     Active Substance: AMLODIPINE BESYLATE
     Dosage: 10
  8. CLARITIN [Concomitant]
     Active Substance: LORATADINE
  9. EFFEXOR XR [Concomitant]
     Active Substance: VENLAFAXINE HYDROCHLORIDE
  10. SOMATULINE DEPOT [Suspect]
     Active Substance: LANREOTIDE ACETATE
     Indication: MULTIPLE ENDOCRINE NEOPLASIA
     Route: 058
     Dates: start: 2017
  11. SOMATULINE DEPOT [Suspect]
     Active Substance: LANREOTIDE ACETATE
     Indication: OFF LABEL USE
  12. GABAPENTIN. [Concomitant]
     Active Substance: GABAPENTIN
  13. SOMATULINE DEPOT [Suspect]
     Active Substance: LANREOTIDE ACETATE
     Indication: METASTATIC CARCINOID TUMOUR
  14. PANCREALIPASE [Concomitant]
     Active Substance: PANCRELIPASE
     Dosage: 15000
  15. AFINITOR [Concomitant]
     Active Substance: EVEROLIMUS
  16. VICODIN [Concomitant]
     Active Substance: ACETAMINOPHEN\HYDROCODONE BITARTRATE
     Dosage: 325/5

REACTIONS (2)
  - Coronavirus infection [Not Recovered/Not Resolved]
  - Off label use [Unknown]
